FAERS Safety Report 6093373-8 (Version None)
Quarter: 2009Q1

REPORT INFORMATION
  Report Type: 
  Country: None (occurrence: None)
  Receive Date: 20090226
  Receipt Date: 20090216
  Transmission Date: 20090719
  Serious: Yes (Other)
  Sender: FDA-Public Use
  Company Number: US-WYE-H08233609

PATIENT
  Sex: Male
  Weight: 72.64 kg

DRUGS (2)
  1. PRISTIQ [Suspect]
     Indication: DEPRESSION
     Route: 048
     Dates: start: 20081201
  2. GUAIFENESIN/DEXTROMETHORPHAN HYDROBROMIDE [Interacting]
     Route: 048
     Dates: start: 20090214, end: 20090214

REACTIONS (8)
  - ASTHENIA [None]
  - DISORIENTATION [None]
  - DIZZINESS [None]
  - DRUG INTERACTION [None]
  - GAIT DISTURBANCE [None]
  - HEAD INJURY [None]
  - HYPOAESTHESIA [None]
  - NAUSEA [None]
